FAERS Safety Report 8541135-1 (Version None)
Quarter: 2012Q3

REPORT INFORMATION
  Report Type: 
  Country: None (occurrence: None)
  Receive Date: 20120726
  Receipt Date: 20110816
  Transmission Date: 20120928
  Serious: No
  Sender: FDA-Public Use
  Company Number: US-ASTRAZENECA-2011SE49124

PATIENT
  Age: 61 Year
  Sex: Male

DRUGS (6)
  1. NAMENDA [Concomitant]
  2. SEROQUEL XR [Suspect]
     Indication: BIPOLAR DISORDER
     Route: 048
     Dates: start: 20110813
  3. GENERIC XANAX [Concomitant]
  4. GENERIC CELEXA [Concomitant]
  5. SIMVASTATIN [Concomitant]
  6. LISINOPRIL AND HYDROCHLOROTHIAZIDE [Concomitant]

REACTIONS (3)
  - ANXIETY [None]
  - DISTURBANCE IN ATTENTION [None]
  - INSOMNIA [None]
